FAERS Safety Report 5316419-0 (Version None)
Quarter: 2007Q2

REPORT INFORMATION
  Report Type: 
  Country: None (occurrence: None)
  Receive Date: 20070504
  Receipt Date: 20070425
  Transmission Date: 20071010
  Serious: No
  Sender: FDA-Public Use
  Company Number: PHEH2007US05057

PATIENT
  Age: 52 Year
  Sex: Female

DRUGS (16)
  1. ZELNORM [Suspect]
     Dosage: 6MG, UNK
     Route: 048
     Dates: start: 20060101, end: 20070401
  2. COMBIVENT /GFR/ [Concomitant]
  3. TOPAMAX [Concomitant]
  4. NEXIUM [Concomitant]
     Route: 048
  5. FLEXERIL [Concomitant]
     Route: 048
  6. COREG [Concomitant]
     Route: 048
  7. ACCUPRIL [Concomitant]
     Route: 048
  8. LYRICA [Concomitant]
     Route: 048
  9. CYMBALTA [Concomitant]
     Route: 048
  10. ZOCOR [Concomitant]
     Route: 048
  11. TRICOR [Concomitant]
     Route: 048
  12. VYTORIN [Concomitant]
     Route: 048
  13. COQ10 [Concomitant]
     Route: 048
  14. OMEGA 3 [Concomitant]
     Route: 048
  15. VITAMIN CAP [Concomitant]
     Route: 048
  16. BONIVA [Concomitant]
     Route: 048

REACTIONS (4)
  - CHEST PAIN [None]
  - DYSPHAGIA [None]
  - DYSPNOEA [None]
  - PALPITATIONS [None]
